FAERS Safety Report 10700629 (Version 3)
Quarter: 2015Q3

REPORT INFORMATION
  Report Type: Spontaneous
  Country: KR (occurrence: KR)
  Receive Date: 20150109
  Receipt Date: 20150724
  Transmission Date: 20151125
  Serious: Yes (Hospitalization)
  Sender: FDA-Public Use
  Company Number: KR-OTSUKA-US-2015-10032

PATIENT

DRUGS (21)
  1. FLAGYL [Concomitant]
     Active Substance: METRONIDAZOLE\METRONIDAZOLE HYDROCHLORIDE
     Indication: COLITIS
     Dosage: 500 MG, 3 IN
     Route: 048
     Dates: start: 20141028, end: 20141106
  2. DACOGEN [Suspect]
     Active Substance: DECITABINE
     Indication: ACUTE MYELOID LEUKAEMIA
     Dosage: 20 MG/M2, 1 IN
     Route: 042
     Dates: start: 20141002, end: 20141004
  3. BANAN [Concomitant]
     Active Substance: CEFPODOXIME PROXETIL
     Indication: URINARY TRACT INFECTION
     Dosage: 100 MG, 2 IN
     Route: 048
     Dates: start: 20141012, end: 20141015
  4. SPORANOX [Concomitant]
     Active Substance: ITRACONAZOLE\SODIUM CHLORIDE
     Indication: PROPHYLAXIS
     Dosage: 10 MG, 2 IN
     Route: 048
     Dates: start: 20141031
  5. SULBACTAM SODIUM [Concomitant]
     Active Substance: SULBACTAM SODIUM
     Indication: URINARY TRACT INFECTION
     Dosage: 3000 MG, 4 IN
     Route: 042
     Dates: start: 20141001, end: 20141002
  6. LASIX [Concomitant]
     Active Substance: FUROSEMIDE
     Dosage: 20 MG, 1 IN
     Route: 042
     Dates: start: 20141104, end: 20141104
  7. MECOBALAMIN [Concomitant]
     Active Substance: METHYLCOBALAMIN
     Indication: ACUTE MYELOID LEUKAEMIA
     Dosage: 1 MG, 2 IN
     Route: 048
  8. DACOGEN [Suspect]
     Active Substance: DECITABINE
     Dosage: 20 MG/M2, 1 IN
     Route: 042
     Dates: start: 20150102, end: 20150108
  9. LASIX [Concomitant]
     Active Substance: FUROSEMIDE
     Dosage: 20 MG, 1 IN
     Route: 042
     Dates: start: 20141107, end: 20141107
  10. LASIX [Concomitant]
     Active Substance: FUROSEMIDE
     Dosage: 20 MG, 1 IN
     Route: 042
     Dates: start: 20141110, end: 20141110
  11. VITAMIN C [Concomitant]
     Active Substance: ASCORBIC ACID
     Indication: ACUTE MYELOID LEUKAEMIA
     Dosage: 1 G, 2 IN
     Route: 048
  12. POTASSIUM CHLORIDE. [Concomitant]
     Active Substance: POTASSIUM CHLORIDE
     Indication: ELECTROLYTE IMBALANCE
     Dosage: 10 ML, 1 IN
     Route: 042
     Dates: start: 20141031, end: 20141031
  13. K-CONTIN CONTINUS [Concomitant]
     Indication: ELECTROLYTE IMBALANCE
     Dosage: 600 MG, 3 IN
     Route: 048
     Dates: end: 20141109
  14. BENZYDAMINE [Concomitant]
     Active Substance: BENZYDAMINE
     Indication: OROPHARYNGEAL PAIN
     Dosage: 15 ML, 3 IN
     Route: 048
     Dates: end: 20141231
  15. DACOGEN [Suspect]
     Active Substance: DECITABINE
     Dosage: 20 MG/M2, 1 IN
     Route: 042
     Dates: start: 20141205, end: 20141209
  16. FOLIC ACID. [Concomitant]
     Active Substance: FOLIC ACID
     Indication: ACUTE MYELOID LEUKAEMIA
     Dosage: 1 MG, 1 IN
     Route: 048
  17. PYRIDOXINE [Concomitant]
     Active Substance: PYRIDOXINE
     Indication: ACUTE MYELOID LEUKAEMIA
     Dosage: 50 MG, 2 IN
     Route: 048
  18. DACOGEN [Suspect]
     Active Substance: DECITABINE
     Dosage: 20 MG/M2, 1 IN
     Route: 042
     Dates: start: 20141001, end: 20141104
  19. DACOGEN [Suspect]
     Active Substance: DECITABINE
     Dosage: 20 MG/M2, UNK
     Route: 042
     Dates: start: 20150127, end: 20150202
  20. CITOPCIN [Concomitant]
     Indication: PROPHYLAXIS
     Dosage: 250 MG, 1 IN
     Route: 048
     Dates: start: 20141110
  21. GRASIN [Concomitant]
     Indication: BONE MARROW DISORDER
     Dosage: 0.7 UNK, 1 IN
     Route: 058
     Dates: start: 20141117, end: 20141117

REACTIONS (3)
  - Urinary tract infection [Recovered/Resolved]
  - Cough [Recovered/Resolved]
  - Pseudomembranous colitis [Recovered/Resolved]

NARRATIVE: CASE EVENT DATE: 20141027
